FAERS Safety Report 25117658 (Version 1)
Quarter: 2025Q1

REPORT INFORMATION
  Report Type: Spontaneous
  Country: ES (occurrence: ES)
  Receive Date: 20250325
  Receipt Date: 20250325
  Transmission Date: 20250408
  Serious: Yes (Other)
  Sender: RANBAXY
  Company Number: ES-AEMPS-1625409

PATIENT
  Age: 41 Year
  Sex: Male

DRUGS (1)
  1. ATORVASTATIN [Suspect]
     Active Substance: ATORVASTATIN
     Indication: Hypercholesterolaemia
     Dosage: 30 MILLIGRAM, QD
     Route: 048
     Dates: start: 2020, end: 202406

REACTIONS (2)
  - Tendon rupture [Unknown]
  - Tendonitis [Unknown]

NARRATIVE: CASE EVENT DATE: 20240101
